FAERS Safety Report 6825624-3 (Version None)
Quarter: 2010Q3

REPORT INFORMATION
  Report Type: 
  Country: None (occurrence: None)
  Receive Date: 20100708
  Receipt Date: 20070425
  Transmission Date: 20110219
  Serious: Yes (Hospitalization, Other)
  Sender: FDA-Public Use
  Company Number: US-PFIZER INC-2006144423

PATIENT
  Sex: Female
  Weight: 79.8 kg

DRUGS (2)
  1. CHANTIX [Suspect]
     Indication: TOBACCO USER
     Route: 048
     Dates: start: 20060929, end: 20061020
  2. CHANTIX [Suspect]
     Indication: EX-TOBACCO USER

REACTIONS (3)
  - ABNORMAL SENSATION IN EYE [None]
  - EXTRAOCULAR MUSCLE PARESIS [None]
  - VIITH NERVE PARALYSIS [None]
